FAERS Safety Report 22630385 (Version 1)
Quarter: 2023Q2

REPORT INFORMATION
  Report Type: Spontaneous
  Country: FR (occurrence: FR)
  Receive Date: 20230622
  Receipt Date: 20230622
  Transmission Date: 20230721
  Serious: Yes (Hospitalization)
  Sender: FDA-Public Use
  Company Number: None

PATIENT
  Age: 24 Year
  Sex: Male

DRUGS (9)
  1. ROCURONIUM BROMIDE [Suspect]
     Active Substance: ROCURONIUM BROMIDE
     Indication: Induction of anaesthesia
     Route: 042
     Dates: start: 20220720
  2. DALACINE 600 mg, solution for injection [Concomitant]
     Indication: Anaesthesia
     Route: 042
     Dates: start: 20220720
  3. EXACYL 0.5 g/5 ml I.V., solution for injection [Concomitant]
     Indication: Antibiotic prophylaxis
     Route: 042
     Dates: start: 20220720
  4. PROPOFOL LIPURO 2% (20 mg/ml), emulsion for injection or infusion [PRO [Concomitant]
     Indication: Anaesthesia
     Route: 042
     Dates: start: 20220720
  5. LIDOCAINE AGUETTANT 1%, solution for injection in ampoule [Concomitant]
     Indication: Anaesthesia
     Route: 042
     Dates: start: 20220720
  6. KETAMINE [Concomitant]
     Active Substance: KETAMINE
     Indication: Anaesthesia
     Route: 042
     Dates: start: 20220720
  7. SUFENTANIL MYLAN 50 micrograms/ml, solution for injection [Concomitant]
     Indication: Anaesthesia
     Route: 042
     Dates: start: 20220720
  8. DEXAMETHASONE MYLAN 4 mg/1 ml, solution for injection in ampoule [Concomitant]
     Indication: Product used for unknown indication
     Route: 042
     Dates: start: 20220720
  9. CEFAZOLIN [Concomitant]
     Active Substance: CEFAZOLIN
     Indication: Antibiotic prophylaxis
     Route: 042
     Dates: start: 20220720

REACTIONS (1)
  - Angioedema [Recovered/Resolved]

NARRATIVE: CASE EVENT DATE: 20220720
